FAERS Safety Report 7105873-X (Version None)
Quarter: 2010Q4

REPORT INFORMATION
  Report Type: 
  Country: None (occurrence: None)
  Receive Date: 20101116
  Receipt Date: 20101110
  Transmission Date: 20110411
  Serious: Yes (Other)
  Sender: FDA-Public Use
  Company Number: A0876395A

PATIENT

DRUGS (3)
  1. EPZICOM [Suspect]
     Indication: ANTIRETROVIRAL THERAPY
  2. REYATAZ [Suspect]
     Indication: ANTIRETROVIRAL THERAPY
  3. TRUVADA [Suspect]
     Indication: ANTIRETROVIRAL THERAPY

REACTIONS (3)
  - DRUG EXPOSURE DURING PREGNANCY [None]
  - MUSCULOSKELETAL DISORDER [None]
  - PARALYSIS [None]
